FAERS Safety Report 23315111 (Version 1)
Quarter: 2023Q4

REPORT INFORMATION
  Report Type: Spontaneous
  Country: US (occurrence: US)
  Receive Date: 20231219
  Receipt Date: 20231219
  Transmission Date: 20240110
  Serious: Yes (Other)
  Sender: FDA-Public Use
  Company Number: US-FOUNDATIONCONSUMERHC-2023-US-041687

PATIENT
  Age: 30 Year
  Sex: Female
  Weight: 61.24 kg

DRUGS (1)
  1. PLAN B ONE-STEP [Suspect]
     Active Substance: LEVONORGESTREL
     Indication: Contraception
     Dosage: TAKE 1 PLAN B WITHIN 72 HOURS OF UPI X 40
     Route: 048
     Dates: start: 2021, end: 2022

REACTIONS (8)
  - Suicidal ideation [Unknown]
  - Adnexa uteri pain [Recovered/Resolved]
  - Vaginal discharge [Not Recovered/Not Resolved]
  - Vulvovaginal burning sensation [Not Recovered/Not Resolved]
  - Vulvovaginal dryness [Not Recovered/Not Resolved]
  - Fungal infection [Not Recovered/Not Resolved]
  - Intentional product misuse [Recovered/Resolved]
  - Product use in unapproved indication [Recovered/Resolved]

NARRATIVE: CASE EVENT DATE: 20210101
